FAERS Safety Report 11233600 (Version 2)
Quarter: 2015Q3

REPORT INFORMATION
  Report Type: Spontaneous
  Country: US (occurrence: US)
  Receive Date: 20150702
  Receipt Date: 20150707
  Transmission Date: 20151125
  Serious: No
  Sender: FDA-Public Use
  Company Number: US-ASTRAZENECA-2015SE64198

PATIENT
  Age: 67 Year
  Sex: Female

DRUGS (5)
  1. TEKTURNA [Concomitant]
     Active Substance: ALISKIREN HEMIFUMARATE
     Route: 065
     Dates: start: 20150309
  2. ZOCOR [Concomitant]
     Active Substance: SIMVASTATIN
  3. ACE INHIBITORS [Concomitant]
     Active Substance: UNSPECIFIED INGREDIENT
  4. PRAVASTATIN [Concomitant]
     Active Substance: PRAVASTATIN\PRAVASTATIN SODIUM
  5. CRESTOR [Suspect]
     Active Substance: ROSUVASTATIN CALCIUM
     Route: 048

REACTIONS (5)
  - Paraesthesia oral [Unknown]
  - Drug intolerance [Unknown]
  - Lip swelling [Unknown]
  - Lip disorder [Unknown]
  - Feeling abnormal [Unknown]
